FAERS Safety Report 10633763 (Version 3)
Quarter: 2015Q1

REPORT INFORMATION
  Report Type: Spontaneous
  Country: US (occurrence: US)
  Receive Date: 20141205
  Receipt Date: 20150130
  Transmission Date: 20150720
  Serious: No
  Sender: FDA-Public Use
  Company Number: US-009507513-1008USA01689

PATIENT
  Sex: Male

DRUGS (1)
  1. PROPECIA [Suspect]
     Active Substance: FINASTERIDE
     Indication: ALOPECIA
     Dosage: 1 MG, QD
     Route: 048
     Dates: start: 20000523, end: 200709

REACTIONS (9)
  - Laser therapy [Unknown]
  - Skin atrophy [Not Recovered/Not Resolved]
  - Prostatitis [Unknown]
  - Depression [Unknown]
  - Dry skin [Unknown]
  - Anxiety [Unknown]
  - Peyronie^s disease [Not Recovered/Not Resolved]
  - Testicular disorder [Unknown]
  - Testicular disorder [Not Recovered/Not Resolved]

NARRATIVE: CASE EVENT DATE: 2001
